FAERS Safety Report 25531679 (Version 2)
Quarter: 2025Q3

REPORT INFORMATION
  Report Type: Report from Study
  Country: CA (occurrence: CA)
  Receive Date: 20250709
  Receipt Date: 20250715
  Transmission Date: 20251020
  Serious: Yes (Other)
  Sender: TAKEDA
  Company Number: CA-TAKEDA-2025TUS044686

PATIENT
  Age: 66 Year
  Sex: Female

DRUGS (4)
  1. VEDOLIZUMAB [Suspect]
     Active Substance: VEDOLIZUMAB
     Indication: Colitis ulcerative
  2. VEDOLIZUMAB [Suspect]
     Active Substance: VEDOLIZUMAB
  3. VEDOLIZUMAB [Suspect]
     Active Substance: VEDOLIZUMAB
     Dosage: 300 MILLIGRAM, Q4WEEKS
     Dates: start: 20250710
  4. ENTOCORT [Concomitant]
     Active Substance: BUDESONIDE

REACTIONS (6)
  - Colitis ulcerative [Unknown]
  - Anal incontinence [Recovering/Resolving]
  - Frequent bowel movements [Recovering/Resolving]
  - Rectal discharge [Unknown]
  - Off label use [Unknown]
  - Flatulence [Recovering/Resolving]

NARRATIVE: CASE EVENT DATE: 20250710
